FAERS Safety Report 9146915 (Version 2)
Quarter: 2013Q1

REPORT INFORMATION
  Report Type: Spontaneous
  Country: US (occurrence: US)
  Receive Date: 20130307
  Receipt Date: 20130314
  Transmission Date: 20140127
  Serious: No
  Sender: FDA-Public Use
  Company Number: US-PFIZER INC-2013079760

PATIENT
  Age: 41 Year
  Sex: Female
  Weight: 68.03 kg

DRUGS (3)
  1. LYRICA [Suspect]
     Indication: FIBROMYALGIA
     Dosage: 100 MG, 4X/DAY
     Route: 048
     Dates: start: 2007
  2. LYRICA [Suspect]
     Dosage: UNK
  3. TOPAMAX [Concomitant]
     Dosage: UNK

REACTIONS (2)
  - Headache [Unknown]
  - Nasopharyngitis [Recovered/Resolved]
